FAERS Safety Report 23160731 (Version 1)
Quarter: 2023Q4

REPORT INFORMATION
  Report Type: Spontaneous
  Country: MY (occurrence: MY)
  Receive Date: 20231108
  Receipt Date: 20231108
  Transmission Date: 20240110
  Serious: No
  Sender: FDA-Public Use
  Company Number: MY-SCALL-2022-MY-186286

PATIENT
  Age: 68 Year
  Sex: Male

DRUGS (1)
  1. DUTASTERIDE\TAMSULOSIN [Suspect]
     Active Substance: DUTASTERIDE\TAMSULOSIN
     Indication: Benign prostatic hyperplasia
     Dosage: 1 DF, QD , 0.5MG/0.4 MG
     Route: 048

REACTIONS (2)
  - Dizziness [Unknown]
  - Loss of libido [Unknown]
